FAERS Safety Report 19853020 (Version 2)
Quarter: 2025Q1

REPORT INFORMATION
  Report Type: Spontaneous
  Country: US (occurrence: US)
  Receive Date: 20210919
  Receipt Date: 20250128
  Transmission Date: 20250409
  Serious: No
  Sender: SANOFI AVENTIS
  Company Number: US-SA-SAC20210914001416

PATIENT
  Age: 57 Year
  Sex: Female

DRUGS (21)
  1. DUPIXENT [Suspect]
     Active Substance: DUPILUMAB
     Indication: Asthma
     Dosage: 300 MG, QOW
     Route: 058
  2. PREDNISONE [Concomitant]
     Active Substance: PREDNISONE
  3. ALBUTEROL [Concomitant]
     Active Substance: ALBUTEROL
  4. ATORVASTATIN [Concomitant]
     Active Substance: ATORVASTATIN
  5. AZELASTINE [Concomitant]
     Active Substance: AZELASTINE
  6. BREO ELLIPTA [Concomitant]
     Active Substance: FLUTICASONE FUROATE\VILANTEROL TRIFENATATE
  7. BUSPIRONE [Concomitant]
     Active Substance: BUSPIRONE HYDROCHLORIDE
  8. CELECOXIB [Concomitant]
     Active Substance: CELECOXIB
  9. FLUTICASONE [Concomitant]
     Active Substance: FLUTICASONE
  10. GABAPENTIN [Concomitant]
     Active Substance: GABAPENTIN
  11. IPRATROPIUM [Concomitant]
     Active Substance: IPRATROPIUM
  12. LEXAPRO [Concomitant]
     Active Substance: ESCITALOPRAM OXALATE
  13. METHOTREXATE [Concomitant]
     Active Substance: METHOTREXATE
  14. OLOPATADINE [Concomitant]
     Active Substance: OLOPATADINE
  15. RANITIDINE [Concomitant]
     Active Substance: RANITIDINE
  16. REMERON [Concomitant]
     Active Substance: MIRTAZAPINE
  17. SPIRIVA [Concomitant]
     Active Substance: TIOTROPIUM BROMIDE MONOHYDRATE
  18. TOPAMAX [Concomitant]
     Active Substance: TOPIRAMATE
  19. DIAZEPAM [Concomitant]
     Active Substance: DIAZEPAM
  20. MOVANTIK [Concomitant]
     Active Substance: NALOXEGOL OXALATE
  21. CYCLOBENZAPRINE [Concomitant]
     Active Substance: CYCLOBENZAPRINE

REACTIONS (7)
  - Ear infection [Unknown]
  - Psychotic disorder [Unknown]
  - Road traffic accident [Unknown]
  - Fracture [Unknown]
  - Incontinence [Unknown]
  - Wheezing [Unknown]
  - Dyspnoea [Unknown]
